FAERS Safety Report 14374997 (Version 1)
Quarter: 2018Q1

REPORT INFORMATION
  Report Type: Spontaneous
  Country: US (occurrence: US)
  Receive Date: 20180111
  Receipt Date: 20180111
  Transmission Date: 20180509
  Serious: No
  Sender: FDA-Public Use
  Company Number: US-PFIZER INC-2018008892

PATIENT
  Age: 22 Year
  Sex: Female
  Weight: 57 kg

DRUGS (3)
  1. NORTREL [Suspect]
     Active Substance: ETHINYL ESTRADIOL\NORETHINDRONE
     Indication: ORAL CONTRACEPTION
     Dosage: UNK
  2. NORTREL [Suspect]
     Active Substance: ETHINYL ESTRADIOL\NORETHINDRONE
     Indication: HORMONE LEVEL ABNORMAL
  3. PRISTIQ EXTENDED-RELEASE [Suspect]
     Active Substance: DESVENLAFAXINE SUCCINATE
     Indication: ANXIETY
     Dosage: 50 MG, ONCE A DAY
     Route: 048
     Dates: start: 201712

REACTIONS (2)
  - Progesterone decreased [Unknown]
  - Night sweats [Not Recovered/Not Resolved]

NARRATIVE: CASE EVENT DATE: 201712
